FAERS Safety Report 8138597-0 (Version None)
Quarter: 2012Q1

REPORT INFORMATION
  Report Type: 
  Country: None (occurrence: None)
  Receive Date: 20120215
  Receipt Date: 20120131
  Transmission Date: 20120608
  Serious: Yes (Hospitalization)
  Sender: FDA-Public Use
  Company Number: TR-MEDIMMUNE-MEDI-0014867

PATIENT
  Sex: Female
  Weight: 7.5 kg

DRUGS (1)
  1. SYNAGIS [Suspect]
     Route: 030
     Dates: start: 20111227

REACTIONS (3)
  - PNEUMONIA [None]
  - COUGH [None]
  - OBSTRUCTIVE AIRWAYS DISORDER [None]
